FAERS Safety Report 4333127-3 (Version None)
Quarter: 2004Q2

REPORT INFORMATION
  Report Type: 
  Country: None (occurrence: None)
  Receive Date: 20040402
  Receipt Date: 20040318
  Transmission Date: 20050107
  Serious: Yes (Other)
  Sender: FDA-Public Use
  Company Number: 2004-DE-01364GD

PATIENT

DRUGS (2)
  1. NEVIRAPINE (NEVIRAPINE) (NR) [Suspect]
     Indication: HUMAN IMMUNODEFICIENCY VIRUS TRANSMISSION
     Dosage: 2 MG/KG  , PO  ONCE
     Route: 048
  2. ZIDOVUDINE [Suspect]
     Indication: HUMAN IMMUNODEFICIENCY VIRUS TRANSMISSION
     Dosage: 2 MG/KG  , PO
     Route: 048

REACTIONS (3)
  - CONGENITAL HIV INFECTION [None]
  - MATERNAL CONDITION AFFECTING FOETUS [None]
  - VERTICAL INFECTION TRANSMISSION [None]
